FAERS Safety Report 5648120-8 (Version None)
Quarter: 2008Q1

REPORT INFORMATION
  Report Type: 
  Country: None (occurrence: None)
  Receive Date: 20080229
  Receipt Date: 20080219
  Transmission Date: 20080703
  Serious: Yes (Death, Life-Threatening)
  Sender: FDA-Public Use
  Company Number: 2008-00060

PATIENT
  Age: 61 Year
  Sex: Female
  Weight: 51 kg

DRUGS (15)
  1. VELCADE [Suspect]
     Indication: MULTIPLE MYELOMA
     Dosage: 1.30 MG/M2, INTRAVENOUS
     Route: 042
     Dates: start: 20071218, end: 20071228
  2. MUCOSTA (REBAMIPIDE) [Concomitant]
  3. ONE-ALPHA (ALFACALCIDOL) [Concomitant]
  4. GASMOTIN (MOSAPRIDE CITRATE) [Concomitant]
  5. DIFLUCAN [Concomitant]
  6. ZOVIRAX [Concomitant]
  7. CLARITHROMYCIN [Concomitant]
  8. OMEPRAL (OMEPRAZOLE) [Concomitant]
  9. PYRINAZIN (PARACETAMOL) [Concomitant]
  10. PRIMPERAN TAB [Concomitant]
  11. ALOSENN (TARAXACUM OFFICINALE, ACHILLEA, SENNA LEAF, RUBIA ROOT TINCTU [Concomitant]
  12. MAGNESIUM OXIDE (MAGNESIUM OXIDE) [Concomitant]
  13. AMOBAN (ZOPICLONE) [Concomitant]
  14. PURSENNID (SENNA LEAF) [Concomitant]
  15. DECADRON [Concomitant]

REACTIONS (2)
  - DISEASE PROGRESSION [None]
  - HYPOTENSION [None]
